FAERS Safety Report 7122596-1 (Version None)
Quarter: 2010Q4

REPORT INFORMATION
  Report Type: 
  Country: None (occurrence: None)
  Receive Date: 20101124
  Receipt Date: 20101115
  Transmission Date: 20110411
  Serious: Yes (Hospitalization)
  Sender: FDA-Public Use
  Company Number: US-WATSON-2010-15055

PATIENT
  Age: 29 Year
  Sex: Male

DRUGS (1)
  1. METHYLPHENIDATE HYDROCHLORIDE [Suspect]
     Indication: DRUG ABUSE
     Dosage: 700 MG, SINGLE (35 TABLETS)
     Route: 042

REACTIONS (3)
  - DRUG ABUSE [None]
  - DRUG TOXICITY [None]
  - RHABDOMYOLYSIS [None]
